FAERS Safety Report 4705183-1 (Version None)
Quarter: 2005Q3

REPORT INFORMATION
  Report Type: 
  Country: None (occurrence: None)
  Receive Date: 20050701
  Receipt Date: 20021010
  Transmission Date: 20060218
  Serious: Yes (Hospitalization)
  Sender: FDA-Public Use
  Company Number: PHHO2002FR07631

PATIENT
  Age: 64 Year
  Sex: Male
  Weight: 95 kg

DRUGS (7)
  1. ERL080 [Suspect]
     Indication: RENAL TRANSPLANT
     Dosage: 720 MG, BID
     Route: 048
     Dates: start: 20020922
  2. ERL080 [Suspect]
     Dosage: NOT REPORTED
     Route: 048
  3. BACTRIM [Suspect]
     Indication: INFECTION PROPHYLAXIS
     Dosage: 400 MG / DAY
     Route: 048
     Dates: start: 20020922, end: 20021004
  4. NEORAL [Concomitant]
     Indication: RENAL TRANSPLANT
     Dosage: NOT REPORTED
     Route: 048
     Dates: start: 20020928
  5. INSULIN [Concomitant]
  6. SOLU-MEDROL [Concomitant]
     Indication: RENAL TRANSPLANT
     Dosage: NOT REPORTED
     Route: 048
     Dates: start: 20021003, end: 20021008
  7. PEPCID [Concomitant]

REACTIONS (2)
  - ALANINE AMINOTRANSFERASE INCREASED [None]
  - HEPATITIS [None]
